FAERS Safety Report 12941401 (Version 1)
Quarter: 2016Q4

REPORT INFORMATION
  Report Type: Spontaneous
  Country: US (occurrence: US)
  Receive Date: 20161115
  Receipt Date: 20161115
  Transmission Date: 20170207
  Serious: Yes (Hospitalization)
  Sender: FDA-Public Use
  Company Number: None

PATIENT
  Age: 47 Year
  Sex: Female
  Weight: 98 kg

DRUGS (7)
  1. ALBUTEROL. [Concomitant]
     Active Substance: ALBUTEROL
  2. HUMALOG [Concomitant]
     Active Substance: INSULIN LISPRO
  3. SOMA [Suspect]
     Active Substance: CARISOPRODOL
     Indication: PAIN
     Dosage: 4 X DAY, PO
     Route: 048
  4. COREG [Concomitant]
     Active Substance: CARVEDILOL
  5. LANTUS [Concomitant]
     Active Substance: INSULIN GLARGINE
  6. COMBIVENT [Concomitant]
     Active Substance: ALBUTEROL SULFATE\IPRATROPIUM BROMIDE
  7. XANAX [Suspect]
     Active Substance: ALPRAZOLAM
     Indication: SLEEP DISORDER
     Dosage: 0.25MG PRN SLEEP PO
     Route: 048

REACTIONS (3)
  - Drug ineffective [None]
  - Overdose [None]
  - Therapy cessation [None]

NARRATIVE: CASE EVENT DATE: 20150714
